FAERS Safety Report 8622753-9 (Version None)
Quarter: 2012Q3

REPORT INFORMATION
  Report Type: 
  Country: None (occurrence: None)
  Receive Date: 20120827
  Receipt Date: 20120816
  Transmission Date: 20120928
  Serious: Yes (Other)
  Sender: FDA-Public Use
  Company Number: US-JNJFOC-20120808582

PATIENT
  Sex: Female
  Weight: 68.04 kg

DRUGS (1)
  1. INVEGA SUSTENNA [Suspect]
     Indication: SCHIZOPHRENIA
     Route: 030
     Dates: start: 20120601

REACTIONS (3)
  - LOSS OF LIBIDO [None]
  - HYPOAESTHESIA [None]
  - HALLUCINATION, AUDITORY [None]
